FAERS Safety Report 21373684 (Version 1)
Quarter: 2022Q3

REPORT INFORMATION
  Report Type: Spontaneous
  Country: DK (occurrence: DK)
  Receive Date: 20220926
  Receipt Date: 20220926
  Transmission Date: 20221026
  Serious: Yes (Hospitalization)
  Sender: FDA-Public Use
  Company Number: None

PATIENT
  Age: 78 Year
  Sex: Male

DRUGS (6)
  1. METHOTREXATE [Suspect]
     Active Substance: METHOTREXATE
     Indication: Rheumatoid arthritis
     Dosage: STRENGTH: 2.5 MG (UNCOATED TABLET)
     Route: 048
     Dates: start: 2010, end: 20220905
  2. PANTOPRAZOLE SODIUM [Concomitant]
     Active Substance: PANTOPRAZOLE SODIUM
     Indication: Gastrooesophageal reflux disease
     Dosage: UNK
     Route: 065
     Dates: start: 20171102
  3. ACETAMINOPHEN [Concomitant]
     Active Substance: ACETAMINOPHEN
     Indication: Pain
     Dosage: UNK
     Route: 065
     Dates: start: 20220311
  4. MYCOSTATIN [Concomitant]
     Active Substance: NYSTATIN
     Indication: Oral fungal infection
     Dosage: UNK
     Route: 065
     Dates: start: 20220905
  5. ROPINIROL KRKA [Concomitant]
     Indication: Parkinson^s disease
     Dosage: UNK
     Route: 065
     Dates: start: 20220425
  6. FOLIC ACID [Concomitant]
     Active Substance: FOLIC ACID
     Indication: Vitamin supplementation
     Dosage: UNK
     Route: 065
     Dates: start: 20171106

REACTIONS (4)
  - Febrile neutropenia [Unknown]
  - Toxicity to various agents [Unknown]
  - Pancytopenia [Not Recovered/Not Resolved]
  - Hypotension [Unknown]

NARRATIVE: CASE EVENT DATE: 20220905
